FAERS Safety Report 18656177 (Version 8)
Quarter: 2025Q1

REPORT INFORMATION
  Report Type: Report from Study
  Country: US (occurrence: US)
  Receive Date: 20201223
  Receipt Date: 20250206
  Transmission Date: 20250408
  Serious: Yes (Hospitalization, Other)
  Sender: TAKEDA
  Company Number: US-TAKEDA-2020TUS058075

PATIENT
  Age: 79 Year
  Sex: Male
  Weight: 106 kg

DRUGS (25)
  1. TEDUGLUTIDE [Suspect]
     Active Substance: TEDUGLUTIDE
     Indication: Short-bowel syndrome
     Dosage: 0.505 MILLILITER, QD
  2. TEDUGLUTIDE [Suspect]
     Active Substance: TEDUGLUTIDE
     Dosage: 0.505 MILLILITER, QD
  3. TEDUGLUTIDE [Suspect]
     Active Substance: TEDUGLUTIDE
     Dosage: 5.045 MILLIGRAM, QD
     Dates: start: 20200831
  4. TEDUGLUTIDE [Suspect]
     Active Substance: TEDUGLUTIDE
     Dosage: 5.045 MILLIGRAM, QD
  5. TEDUGLUTIDE [Suspect]
     Active Substance: TEDUGLUTIDE
     Dosage: 4.7 MILLIGRAM, QD
  6. TEDUGLUTIDE [Suspect]
     Active Substance: TEDUGLUTIDE
     Dosage: 4.7 MILLIGRAM, QD
  7. TEDUGLUTIDE [Suspect]
     Active Substance: TEDUGLUTIDE
     Dosage: 4.7 MILLIGRAM, QD
  8. TEDUGLUTIDE [Suspect]
     Active Substance: TEDUGLUTIDE
     Dosage: 4.7 MILLIGRAM, QD
  9. TRAZODONE HCL [Concomitant]
     Active Substance: TRAZODONE HYDROCHLORIDE
  10. TESTOSTERONE CYPIONATE [Concomitant]
     Active Substance: TESTOSTERONE CYPIONATE
  11. SILODOSIN [Concomitant]
     Active Substance: SILODOSIN
  12. QUETIAPINE FUMARATE [Concomitant]
     Active Substance: QUETIAPINE FUMARATE
  13. PROMETHAZINE HYDROCHLORIDE [Concomitant]
     Active Substance: PROMETHAZINE HYDROCHLORIDE
  14. PRAMIPEXOLE DIHYDROCHLORIDE [Concomitant]
     Active Substance: PRAMIPEXOLE DIHYDROCHLORIDE
  15. PANTOPRAZOLE SODIUM [Concomitant]
     Active Substance: PANTOPRAZOLE SODIUM
  16. NITROGLYCERIN [Concomitant]
     Active Substance: NITROGLYCERIN
  17. LYRICA [Concomitant]
     Active Substance: PREGABALIN
  18. KEPPRA XR [Concomitant]
     Active Substance: LEVETIRACETAM
     Dosage: UNK UNK, QD
  19. HYDROCORTISONE [Concomitant]
     Active Substance: HYDROCORTISONE
  20. Aloe extract [Concomitant]
  21. HYDROMORPHONE [Concomitant]
     Active Substance: HYDROMORPHONE
     Dosage: UNK, QD
  22. FENTANYL [Concomitant]
     Active Substance: FENTANYL
  23. EPINEPHRINE [Concomitant]
     Active Substance: EPINEPHRINE
  24. CYCLOBENZAPRINE HYDROCHLORIDE [Concomitant]
     Active Substance: CYCLOBENZAPRINE HYDROCHLORIDE
  25. CARBIDOPA LEVODOPA [Concomitant]
     Active Substance: CARBIDOPA\LEVODOPA

REACTIONS (21)
  - Renal failure [Not Recovered/Not Resolved]
  - Lower limb fracture [Unknown]
  - Fracture malunion [Unknown]
  - Fatigue [Unknown]
  - Blood pressure decreased [Unknown]
  - Hypersomnia [Unknown]
  - Abdominal pain [Unknown]
  - Decreased appetite [Unknown]
  - Weight decreased [Not Recovered/Not Resolved]
  - Diplopia [Unknown]
  - Fall [Unknown]
  - Ankle fracture [Unknown]
  - Gait disturbance [Unknown]
  - Spinal pain [Unknown]
  - Fistula [Unknown]
  - Balance disorder [Unknown]
  - Weight gain poor [Unknown]
  - Inappropriate schedule of product administration [Unknown]
  - Somnolence [Not Recovered/Not Resolved]
  - Sedation [Unknown]
  - Post procedural complication [Not Recovered/Not Resolved]

NARRATIVE: CASE EVENT DATE: 20201202
